FAERS Safety Report 6851104-5 (Version None)
Quarter: 2010Q3

REPORT INFORMATION
  Report Type: 
  Country: None (occurrence: None)
  Receive Date: 20100716
  Receipt Date: 20071026
  Transmission Date: 20110219
  Serious: No
  Sender: FDA-Public Use
  Company Number: US-PFIZER INC-2007092000

PATIENT
  Sex: Female
  Weight: 75.8 kg

DRUGS (4)
  1. CHANTIX [Suspect]
     Indication: SMOKING CESSATION THERAPY
     Dates: start: 20071018
  2. INDERAL [Concomitant]
     Indication: HYPERTENSION
  3. IMDUR [Concomitant]
     Indication: CARDIAC DISORDER
  4. ANTIEMETICS AND ANTINAUSEANTS [Concomitant]
     Indication: MOTION SICKNESS

REACTIONS (3)
  - MALAISE [None]
  - NAUSEA [None]
  - VOMITING [None]
